FAERS Safety Report 12476535 (Version 1)
Quarter: 2016Q2

REPORT INFORMATION
  Report Type: Report from Study
  Country: BR (occurrence: BR)
  Receive Date: 20160617
  Receipt Date: 20160617
  Transmission Date: 20160815
  Serious: Yes (Disabling)
  Sender: FDA-Public Use
  Company Number: BR-ABBVIE-16K-020-1650001-00

PATIENT
  Age: 61 Year
  Sex: Female
  Weight: 86 kg

DRUGS (14)
  1. CLENIL [Concomitant]
     Active Substance: BECLOMETHASONE DIPROPIONATE
     Indication: BRONCHITIS
     Route: 055
     Dates: start: 1982
  2. FLUOXETINE [Concomitant]
     Active Substance: FLUOXETINE HYDROCHLORIDE
     Indication: DEPRESSION
     Route: 048
     Dates: start: 2015
  3. AAS [Concomitant]
     Active Substance: ASPIRIN
     Indication: ANTICOAGULANT THERAPY
  4. AEROGOLD [Concomitant]
     Indication: BRONCHITIS
     Dates: start: 1982
  5. AAS [Concomitant]
     Active Substance: ASPIRIN
     Indication: PAIN
     Route: 048
     Dates: start: 2006
  6. LOSARTAN. [Concomitant]
     Active Substance: LOSARTAN
     Indication: BLOOD PRESSURE ABNORMAL
     Route: 048
     Dates: start: 2015
  7. METICORTEN [Concomitant]
     Active Substance: PREDNISONE
     Indication: BRONCHITIS
     Route: 048
     Dates: start: 1978
  8. HYDROCHLOROTHIAZIDE. [Concomitant]
     Active Substance: HYDROCHLOROTHIAZIDE
     Indication: BLOOD PRESSURE ABNORMAL
     Route: 048
     Dates: start: 2003
  9. AEROLIN [Concomitant]
     Active Substance: ALBUTEROL
     Indication: BRONCHITIS
     Dosage: TWICE
     Dates: start: 1982
  10. PREDNISONE. [Concomitant]
     Active Substance: PREDNISONE
     Indication: BRONCHITIS
     Route: 048
     Dates: start: 1982
  11. PREDNISONE. [Concomitant]
     Active Substance: PREDNISONE
     Indication: PAIN
  12. GABANEURIN [Concomitant]
     Active Substance: GABAPENTIN
     Indication: PAIN
     Route: 048
     Dates: start: 201512
  13. LORATADINE. [Concomitant]
     Active Substance: LORATADINE
     Indication: PRODUCT USED FOR UNKNOWN INDICATION
     Dates: start: 201512
  14. HUMIRA [Suspect]
     Active Substance: ADALIMUMAB
     Indication: RHEUMATOID ARTHRITIS
     Route: 058
     Dates: start: 20090227, end: 201605

REACTIONS (14)
  - Muscle atrophy [Unknown]
  - Exostosis [Not Recovered/Not Resolved]
  - Burning sensation [Not Recovered/Not Resolved]
  - Bone pain [Not Recovered/Not Resolved]
  - Arthralgia [Unknown]
  - Hand deformity [Unknown]
  - Blood cholesterol increased [Not Recovered/Not Resolved]
  - Post-traumatic pain [Not Recovered/Not Resolved]
  - Muscular weakness [Unknown]
  - Injury [Unknown]
  - Chest pain [Recovered/Resolved]
  - Chest pain [Recovered/Resolved]
  - Hypoaesthesia [Not Recovered/Not Resolved]
  - Malaise [Recovered/Resolved]

NARRATIVE: CASE EVENT DATE: 201601
